FAERS Safety Report 12449272 (Version 12)
Quarter: 2016Q4

REPORT INFORMATION
  Report Type: Spontaneous
  Country: AU (occurrence: AU)
  Receive Date: 20160608
  Receipt Date: 20161206
  Transmission Date: 20170207
  Serious: Yes (Hospitalization, Other)
  Sender: FDA-Public Use
  Company Number: AU-TAKEDA-2016MPI005296

PATIENT
  Age: 75 Year
  Sex: Male
  Weight: 102 kg

DRUGS (36)
  1. VELCADE [Suspect]
     Active Substance: BORTEZOMIB
     Dosage: 2.9 MG, UNK
     Route: 058
     Dates: start: 20160607
  2. VELCADE [Suspect]
     Active Substance: BORTEZOMIB
     Dosage: 2.9 MG, UNK
     Route: 058
     Dates: start: 20160809
  3. MELPHALAN [Suspect]
     Active Substance: MELPHALAN
     Dosage: 20 MG, UNK
     Route: 048
     Dates: start: 20160607, end: 20160610
  4. MELPHALAN [Suspect]
     Active Substance: MELPHALAN
     Indication: PLASMA CELL MYELOMA
     Dosage: 20 MG, QD
     Route: 048
     Dates: start: 20160405, end: 20160408
  5. FENOFIBRATE. [Concomitant]
     Active Substance: FENOFIBRATE
     Indication: HYPERLIPIDAEMIA
     Dosage: 140 MG, QD
     Route: 048
     Dates: start: 2012
  6. VITAMIN D                          /00107901/ [Concomitant]
     Active Substance: ERGOCALCIFEROL
     Indication: PROPHYLAXIS
     Dosage: UNK, QD
     Route: 048
     Dates: start: 20160405
  7. AUGMENTIN [Concomitant]
     Active Substance: AMOXICILLIN\CLAVULANATE POTASSIUM
     Dosage: 1000 MG, BID
     Route: 048
     Dates: start: 20160530, end: 20160603
  8. PANTOPRAZOLE [Concomitant]
     Active Substance: PANTOPRAZOLE SODIUM
     Indication: PROPHYLAXIS
     Dosage: 40 MG, QD
     Route: 048
     Dates: start: 20160509
  9. FRUSEMIDE                          /00032601/ [Concomitant]
     Active Substance: FUROSEMIDE
     Dosage: 80 MG, QD
     Route: 048
     Dates: start: 20160926
  10. TELMISARTAN. [Concomitant]
     Active Substance: TELMISARTAN
     Indication: HYPERTENSION
     Dosage: 40 MG, QD
     Route: 048
     Dates: start: 2005, end: 20160524
  11. ZOMETA [Concomitant]
     Active Substance: ZOLEDRONIC ACID
     Indication: PROPHYLAXIS
     Dosage: 4 MG, MONTHLY
     Route: 042
     Dates: start: 20160405
  12. VELCADE [Suspect]
     Active Substance: BORTEZOMIB
     Indication: PLASMA CELL MYELOMA
     Dosage: 2.3 MG, UNK
     Route: 058
     Dates: start: 20160405, end: 20160506
  13. PREDNISOLONE. [Suspect]
     Active Substance: PREDNISOLONE
     Indication: PLASMA CELL MYELOMA
     Dosage: 100 MG, QD
     Route: 048
     Dates: start: 20160405, end: 20160408
  14. ALUMINIUM HYDROXIDE W/MAGNESIUM TRISILICATE [Concomitant]
     Indication: MUSCLE SPASMS
     Dosage: UNK, QD
     Route: 048
     Dates: start: 2013
  15. RESPRIM [Concomitant]
     Indication: INFECTION PROPHYLAXIS
     Dosage: UNK, QD
     Route: 048
     Dates: start: 20160405
  16. SLOW K [Concomitant]
     Active Substance: POTASSIUM CHLORIDE
     Indication: SUPPLEMENTATION THERAPY
     Dosage: 600 MG, QD
     Route: 048
     Dates: start: 20160503, end: 20160515
  17. CALTRATE                           /00944201/ [Concomitant]
     Active Substance: CALCIUM CARBONATE\CHOLECALCIFEROL
     Indication: SUPPLEMENTATION THERAPY
     Dosage: 600 MG, QD
     Route: 048
     Dates: start: 20160503, end: 20160514
  18. AUGMENTIN [Concomitant]
     Active Substance: AMOXICILLIN\CLAVULANATE POTASSIUM
     Indication: HYPONATRAEMIA
     Dosage: UNK, BID
     Route: 048
     Dates: start: 20160513, end: 20160519
  19. OXAZEPAM. [Concomitant]
     Active Substance: OXAZEPAM
     Indication: INSOMNIA
     Dosage: UNK
     Route: 048
     Dates: start: 20160421
  20. SPIRONOLACTONE. [Concomitant]
     Active Substance: SPIRONOLACTONE
     Dosage: 50 MG, UNK
     Route: 048
     Dates: start: 20161031
  21. FRUSEMIDE                          /00032601/ [Concomitant]
     Active Substance: FUROSEMIDE
     Indication: DIURETIC THERAPY
     Dosage: 20 MG, QD
     Route: 048
     Dates: start: 20160607, end: 20160926
  22. VELCADE [Suspect]
     Active Substance: BORTEZOMIB
     Dosage: 2.9 MG, UNK
     Route: 058
     Dates: start: 20160614
  23. VELCADE [Suspect]
     Active Substance: BORTEZOMIB
     Dosage: 2.9 MG, UNK
     Route: 058
     Dates: start: 20160705
  24. VELCADE [Suspect]
     Active Substance: BORTEZOMIB
     Dosage: 2.9 MG, UNK
     Route: 058
     Dates: start: 20160719
  25. VELCADE [Suspect]
     Active Substance: BORTEZOMIB
     Dosage: 2.9 MG, UNK
     Route: 058
     Dates: start: 20160726
  26. ALLOPURINOL. [Concomitant]
     Active Substance: ALLOPURINOL
     Indication: GOUT
     Dosage: 200 MG, QD
     Route: 048
     Dates: start: 1980
  27. AMOXICILLIN. [Concomitant]
     Active Substance: AMOXICILLIN
     Indication: LOWER RESPIRATORY TRACT INFECTION
     Dosage: 500 MG, BID
     Route: 048
     Dates: start: 20160421
  28. AUGMENTIN [Concomitant]
     Active Substance: AMOXICILLIN\CLAVULANATE POTASSIUM
     Dosage: UNK, BID
     Route: 048
     Dates: start: 20160513, end: 20160519
  29. AUGMENTIN [Concomitant]
     Active Substance: AMOXICILLIN\CLAVULANATE POTASSIUM
     Dosage: UNK, BID
     Route: 048
     Dates: start: 20160421, end: 20160425
  30. AUGMENTIN [Concomitant]
     Active Substance: AMOXICILLIN\CLAVULANATE POTASSIUM
     Indication: LOWER RESPIRATORY TRACT INFECTION
     Dosage: UNK, BID
     Route: 048
     Dates: start: 20160421, end: 20160425
  31. VELCADE [Suspect]
     Active Substance: BORTEZOMIB
     Dosage: 2.9 MG, UNK
     Route: 058
     Dates: start: 20160628
  32. AUGMENTIN [Concomitant]
     Active Substance: AMOXICILLIN\CLAVULANATE POTASSIUM
     Dosage: 1000 MG, BID
     Route: 048
     Dates: start: 20160530, end: 20160603
  33. COLOXYL WITH SENNA [Concomitant]
     Active Substance: DOCUSATE\SENNOSIDES
     Indication: CONSTIPATION
     Dosage: UNK, BID
     Route: 048
     Dates: start: 20160421
  34. VALACICLOVIR [Concomitant]
     Active Substance: VALACYCLOVIR HYDROCHLORIDE
     Indication: HERPES ZOSTER
     Dosage: 500 MG, QD
     Route: 048
     Dates: start: 20160405
  35. CEFTRIAXON [Concomitant]
     Active Substance: CEFTRIAXONE
     Indication: INFECTIVE EXACERBATION OF CHRONIC OBSTRUCTIVE AIRWAYS DISEASE
     Dosage: 1 G, QD
     Route: 042
     Dates: start: 20160510, end: 20160513
  36. SPIRONOLACTONE. [Concomitant]
     Active Substance: SPIRONOLACTONE
     Indication: DIURETIC THERAPY
     Dosage: 25 MG, QD
     Route: 048
     Dates: start: 20160530, end: 20161031

REACTIONS (11)
  - Constipation [Recovered/Resolved]
  - Insomnia [Not Recovered/Not Resolved]
  - Clostridium difficile colitis [Recovered/Resolved]
  - Hypocalcaemia [Recovered/Resolved]
  - Lower respiratory tract infection [Recovered/Resolved]
  - Cellulitis [Unknown]
  - Rash [Unknown]
  - Thrombocytopenia [Recovered/Resolved]
  - Infective exacerbation of chronic obstructive airways disease [Recovered/Resolved]
  - Neutropenia [Recovered/Resolved]
  - Diarrhoea [Recovered/Resolved with Sequelae]

NARRATIVE: CASE EVENT DATE: 20160405
